FAERS Safety Report 20446737 (Version 3)
Quarter: 2024Q3

REPORT INFORMATION
  Report Type: Report from Study
  Country: JP (occurrence: JP)
  Receive Date: 20220208
  Receipt Date: 20240925
  Transmission Date: 20241016
  Serious: Yes (Death, Other)
  Sender: JOHNSON AND JOHNSON
  Company Number: JP-JNJFOC-20211046378

PATIENT

DRUGS (1)
  1. INVEGA [Suspect]
     Active Substance: PALIPERIDONE
     Indication: Schizophrenia
     Dosage: LESS THAN OR EQUAL TO 6 MG/DAY AND 12 MG/DAY ONCE DAILY
     Route: 048

REACTIONS (4)
  - Completed suicide [Fatal]
  - Suicidal ideation [Unknown]
  - Diabetes mellitus [Unknown]
  - Dysphemia [Unknown]
